FAERS Safety Report 26064278 (Version 1)
Quarter: 2025Q4

REPORT INFORMATION
  Report Type: Spontaneous
  Country: US (occurrence: US)
  Receive Date: 20251119
  Receipt Date: 20251119
  Transmission Date: 20260117
  Serious: No
  Sender: GALDERMA
  Company Number: US-GALDERMA-US2025023176

PATIENT

DRUGS (2)
  1. NEMLUVIO [Suspect]
     Active Substance: NEMOLIZUMAB-ILTO
     Indication: Dermatitis atopic
     Dosage: UNK MILLIGRAM
     Route: 058
     Dates: start: 20250617, end: 20250617
  2. NEMLUVIO [Suspect]
     Active Substance: NEMOLIZUMAB-ILTO
     Dosage: UNK MILLIGRAM
     Route: 058
     Dates: start: 202509, end: 202509

REACTIONS (1)
  - Drug ineffective [Not Recovered/Not Resolved]
